FAERS Safety Report 4820183-9 (Version None)
Quarter: 2005Q4

REPORT INFORMATION
  Report Type: 
  Country: None (occurrence: None)
  Receive Date: 20051012
  Receipt Date: 20050623
  Transmission Date: 20060501
  Serious: No
  Sender: FDA-Public Use
  Company Number: A03200501928

PATIENT
  Age: 79 Year
  Sex: Male
  Weight: 62.5964 kg

DRUGS (2)
  1. UROXATRAL [Suspect]
     Dosage: ORAL
     Route: 048
     Dates: start: 20050601
  2. STEROID (NOS) [Suspect]
     Indication: EPIDURAL ANAESTHESIA
     Dates: start: 20050615

REACTIONS (4)
  - BLOOD GLUCOSE INCREASED [None]
  - DIZZINESS [None]
  - POLLAKIURIA [None]
  - RHINORRHOEA [None]
